FAERS Safety Report 4505191-X (Version None)
Quarter: 2004Q4

REPORT INFORMATION
  Report Type: 
  Country: None (occurrence: None)
  Receive Date: 20041117
  Receipt Date: 20041104
  Transmission Date: 20050328
  Serious: Yes (Other)
  Sender: FDA-Public Use
  Company Number: 2004088137

PATIENT
  Sex: Male

DRUGS (1)
  1. LISTERINE ANTISEPTIC MOUTHWASH (MENTHOL, METHYL SALICYLATE, EUCALYPTOL [Suspect]
     Indication: ACCIDENTAL EXPOSURE
     Dosage: A CUPFUL ONCE, ORAL
     Route: 048
     Dates: start: 20041104, end: 20041104

REACTIONS (2)
  - ACCIDENTAL EXPOSURE [None]
  - MEDICATION ERROR [None]
